FAERS Safety Report 6221859-1 (Version None)
Quarter: 2009Q2

REPORT INFORMATION
  Report Type: 
  Country: None (occurrence: None)
  Receive Date: 20090609
  Receipt Date: 20090602
  Transmission Date: 20091009
  Serious: Yes (Death)
  Sender: FDA-Public Use
  Company Number: 2009US002076

PATIENT
  Sex: 0

DRUGS (2)
  1. PROGRAF [Suspect]
     Indication: RENAL AND PANCREAS TRANSPLANT
  2. ASPIRIN [Concomitant]

REACTIONS (1)
  - DEATH [None]
